FAERS Safety Report 13399397 (Version 1)
Quarter: 2017Q2

REPORT INFORMATION
  Report Type: Spontaneous
  Country: US (occurrence: US)
  Receive Date: 20170404
  Receipt Date: 20170404
  Transmission Date: 20170830
  Serious: Yes (Other)
  Sender: FDA-Public Use
  Company Number: US-ROCHE-1913795

PATIENT
  Sex: Female
  Weight: 59.02 kg

DRUGS (7)
  1. PERJETA [Suspect]
     Active Substance: PERTUZUMAB
     Dosage: YES
     Route: 042
     Dates: start: 201603
  2. TAXOTERE [Concomitant]
     Active Substance: DOCETAXEL
     Indication: NEOPLASM MALIGNANT
     Dosage: NO
     Route: 065
     Dates: start: 201503, end: 201509
  3. HERCEPTIN [Suspect]
     Active Substance: TRASTUZUMAB
     Indication: NEOPLASM MALIGNANT
     Dosage: NO
     Route: 042
     Dates: start: 201503, end: 201509
  4. NEULASTA [Concomitant]
     Active Substance: PEGFILGRASTIM
     Dosage: NO
     Route: 065
     Dates: start: 201504, end: 201509
  5. XGEVA [Concomitant]
     Active Substance: DENOSUMAB
     Dosage: NO
     Route: 065
     Dates: start: 201504, end: 201509
  6. PERJETA [Suspect]
     Active Substance: PERTUZUMAB
     Indication: NEOPLASM MALIGNANT
     Dosage: NO
     Route: 042
     Dates: start: 201503, end: 201509
  7. HERCEPTIN [Suspect]
     Active Substance: TRASTUZUMAB
     Dosage: YES
     Route: 042
     Dates: start: 2016

REACTIONS (9)
  - Pruritus [Not Recovered/Not Resolved]
  - Muscle spasms [Not Recovered/Not Resolved]
  - Skin fissures [Not Recovered/Not Resolved]
  - Ejection fraction decreased [Unknown]
  - Onychoclasis [Not Recovered/Not Resolved]
  - Cardiac disorder [Not Recovered/Not Resolved]
  - Skin infection [Not Recovered/Not Resolved]
  - Fatigue [Unknown]
  - Rhinitis [Not Recovered/Not Resolved]

NARRATIVE: CASE EVENT DATE: 201509
